FAERS Safety Report 8060081-3 (Version None)
Quarter: 2012Q1

REPORT INFORMATION
  Report Type: 
  Country: None (occurrence: None)
  Receive Date: 20120120
  Receipt Date: 20120113
  Transmission Date: 20120608
  Serious: Yes (Hospitalization, Other)
  Sender: FDA-Public Use
  Company Number: US-MERCK-1103USA01738

PATIENT
  Age: 57 Year
  Sex: Female
  Weight: 72 kg

DRUGS (9)
  1. FOSAMAX [Suspect]
     Indication: OSTEOPENIA
     Route: 048
     Dates: start: 20000505, end: 20000701
  2. FOSAMAX [Suspect]
     Route: 048
     Dates: start: 19990101
  3. VITAMINS (UNSPECIFIED) [Concomitant]
     Route: 065
  4. FOSAMAX [Suspect]
     Route: 048
     Dates: start: 20000701, end: 20091201
  5. FOSAMAX [Suspect]
     Route: 048
     Dates: start: 20090813, end: 20091214
  6. FOSAMAX [Suspect]
     Route: 048
     Dates: start: 20000701, end: 20091201
  7. FOSAMAX [Suspect]
     Route: 048
     Dates: start: 19990101
  8. FOSAMAX [Suspect]
     Indication: OSTEOPOROSIS
     Route: 048
     Dates: start: 20000505, end: 20000701
  9. FOSAMAX [Suspect]
     Route: 048
     Dates: start: 20090813, end: 20091214

REACTIONS (36)
  - ARTERIOSCLEROSIS [None]
  - LACERATION [None]
  - PALPITATIONS [None]
  - CHEST PAIN [None]
  - ASTHMA [None]
  - DYSPNOEA EXERTIONAL [None]
  - DEVICE FAILURE [None]
  - ABDOMINAL PAIN [None]
  - OEDEMA PERIPHERAL [None]
  - BRONCHITIS [None]
  - MYOCARDIAL INFARCTION [None]
  - DYSLIPIDAEMIA [None]
  - DIVERTICULUM [None]
  - LIGAMENT RUPTURE [None]
  - LOSS OF CONSCIOUSNESS [None]
  - HYPOTHYROIDISM [None]
  - UPPER RESPIRATORY TRACT INFECTION [None]
  - SCIATICA [None]
  - FALL [None]
  - HAEMORRHOIDS [None]
  - GASTRITIS [None]
  - PEPTIC ULCER [None]
  - OSTEOARTHRITIS [None]
  - CHRONIC OBSTRUCTIVE PULMONARY DISEASE [None]
  - COLONIC POLYP [None]
  - ARTHROPATHY [None]
  - FIBULA FRACTURE [None]
  - BONE DENSITY DECREASED [None]
  - INTERVERTEBRAL DISC DISORDER [None]
  - HYPERLIPIDAEMIA [None]
  - GASTROOESOPHAGEAL REFLUX DISEASE [None]
  - BRONCHITIS CHRONIC [None]
  - FEMUR FRACTURE [None]
  - CORONARY ARTERY DISEASE [None]
  - ANGINA PECTORIS [None]
  - ANXIETY [None]
